FAERS Safety Report 5440757-4 (Version None)
Quarter: 2007Q3

REPORT INFORMATION
  Report Type: 
  Country: None (occurrence: None)
  Receive Date: 20070831
  Receipt Date: 20070822
  Transmission Date: 20080115
  Serious: Yes (Hospitalization, Other)
  Sender: FDA-Public Use
  Company Number: PHHO2007AR03799

PATIENT
  Age: 62 Year
  Sex: Male
  Weight: 74.5 kg

DRUGS (9)
  1. NEORAL [Suspect]
     Indication: LIVER TRANSPLANT
     Dosage: 350 MG DAILY
     Route: 048
     Dates: start: 20070122, end: 20070227
  2. DELTISONA [Concomitant]
     Indication: LIVER TRANSPLANT
     Dosage: 12  MG DAILY
     Route: 048
     Dates: start: 20070121
  3. NEORAL [Suspect]
     Indication: LIVER TRANSPLANT
     Dosage: UNK, UNK
     Route: 042
     Dates: start: 20070122
  4. OMEPRAZOLE [Concomitant]
  5. BACTRIM [Concomitant]
  6. MICOSTATIN [Concomitant]
  7. ASPIRIN [Concomitant]
  8. CLONAZEPAM [Concomitant]
  9. INSULIN [Concomitant]

REACTIONS (9)
  - ASCITES [None]
  - FATIGUE [None]
  - HEPATIC FAILURE [None]
  - HEPATITIS C [None]
  - JAUNDICE [None]
  - LIVER FUNCTION TEST ABNORMAL [None]
  - STENT PLACEMENT [None]
  - VOMITING [None]
  - WEIGHT DECREASED [None]
